FAERS Safety Report 5904534-X (Version None)
Quarter: 2008Q4

REPORT INFORMATION
  Report Type: 
  Country: None (occurrence: None)
  Receive Date: 20081001
  Receipt Date: 20080925
  Transmission Date: 20090506
  Serious: Yes (Disabling)
  Sender: FDA-Public Use
  Company Number: BR-ASTRAZENECA-2008UW20664

PATIENT
  Age: 55 Year
  Sex: Female
  Weight: 59 kg

DRUGS (3)
  1. BUDECORT [Suspect]
     Indication: HYPERSENSITIVITY
     Dosage: 32 MCG, FOUR TIMES A DAY
     Route: 055
     Dates: start: 20080721
  2. RUPAFIM [Concomitant]
  3. PREDSIN [Concomitant]

REACTIONS (3)
  - FACIAL PALSY [None]
  - HEADACHE [None]
  - HYPERSENSITIVITY [None]
